FAERS Safety Report 6965840-3 (Version None)
Quarter: 2010Q3

REPORT INFORMATION
  Report Type: 
  Country: None (occurrence: None)
  Receive Date: 20100903
  Receipt Date: 20100901
  Transmission Date: 20110219
  Serious: No
  Sender: FDA-Public Use
  Company Number: US-CEPHALON-2010004686

PATIENT
  Sex: Male

DRUGS (2)
  1. FENTORA [Suspect]
     Indication: NEURALGIA
     Route: 002
  2. OPANA [Concomitant]

REACTIONS (1)
  - POOR QUALITY DRUG ADMINISTERED [None]
